FAERS Safety Report 24195059 (Version 1)
Quarter: 2024Q3

REPORT INFORMATION
  Report Type: Spontaneous
  Country: JP (occurrence: JP)
  Receive Date: 20240809
  Receipt Date: 20240809
  Transmission Date: 20241017
  Serious: Yes (Hospitalization, Other)
  Sender: MEITHEAL PHARMACEUTICALS
  Company Number: JP-MEITHEAL-2024MPLIT00238

PATIENT
  Age: 88 Year
  Sex: Male

DRUGS (1)
  1. CARBOPLATIN [Suspect]
     Active Substance: CARBOPLATIN
     Indication: Lung squamous cell carcinoma stage III
     Dosage: WEEKLY
     Route: 065

REACTIONS (1)
  - Interstitial lung disease [Recovering/Resolving]
